FAERS Safety Report 21552920 (Version 1)
Quarter: 2022Q4

REPORT INFORMATION
  Report Type: Report from Study
  Country: US (occurrence: US)
  Receive Date: 20221104
  Receipt Date: 20221104
  Transmission Date: 20230112
  Serious: Yes (Other)
  Sender: FDA-Public Use
  Company Number: US-ABBVIE-4186917

PATIENT
  Sex: Female

DRUGS (12)
  1. HUMIRA [Suspect]
     Active Substance: ADALIMUMAB
     Indication: Colitis ulcerative
     Dosage: FORM STRENGTH 40 MG
     Route: 058
  2. MESALAMINE [Concomitant]
     Active Substance: MESALAMINE
     Indication: Product used for unknown indication
  3. MESALAMINE [Concomitant]
     Active Substance: MESALAMINE
     Indication: Product used for unknown indication
  4. SERTRALINE HYDROCHLORIDE [Concomitant]
     Active Substance: SERTRALINE HYDROCHLORIDE
     Indication: Product used for unknown indication
  5. BUDESONIDE [Concomitant]
     Active Substance: BUDESONIDE
     Indication: Product used for unknown indication
  6. NOVOLIN N [Concomitant]
     Active Substance: INSULIN HUMAN
     Indication: Product used for unknown indication
  7. METFORMIN HYDROCHLORIDE [Concomitant]
     Active Substance: METFORMIN HYDROCHLORIDE
     Indication: Product used for unknown indication
  8. ONDANSETRON HCL [Concomitant]
     Active Substance: ONDANSETRON HYDROCHLORIDE
     Indication: Product used for unknown indication
  9. NOVOLIN R [Concomitant]
     Active Substance: INSULIN HUMAN
     Indication: Product used for unknown indication
  10. OMEPRAZOLE [Concomitant]
     Active Substance: OMEPRAZOLE
     Indication: Product used for unknown indication
  11. TRULICITY [Suspect]
     Active Substance: DULAGLUTIDE
     Indication: Product used for unknown indication
     Route: 065
  12. BIOTIN [Concomitant]
     Active Substance: BIOTIN
     Indication: Product used for unknown indication

REACTIONS (8)
  - Nephrolithiasis [Unknown]
  - Retching [Unknown]
  - Productive cough [Unknown]
  - Upper-airway cough syndrome [Unknown]
  - Anaemia [Unknown]
  - Cough [Unknown]
  - Pancreatitis [Unknown]
  - Pain [Unknown]
